FAERS Safety Report 6537277-2 (Version None)
Quarter: 2010Q1

REPORT INFORMATION
  Report Type: 
  Country: None (occurrence: None)
  Receive Date: 20100110
  Receipt Date: 20100104
  Transmission Date: 20100710
  Serious: Yes (Hospitalization)
  Sender: FDA-Public Use
  Company Number: TPA2010A00011

PATIENT
  Age: 67 Year
  Sex: Male
  Weight: 68.0396 kg

DRUGS (6)
  1. PREVACID [Suspect]
     Indication: GASTROOESOPHAGEAL REFLUX DISEASE
     Dosage: 30 MG, 1 IN 1 D, PER ORAL
     Route: 048
     Dates: start: 19901101
  2. SIMVASTATIN [Concomitant]
  3. ATENOLOL [Concomitant]
  4. BENAZEPRIL HYDROCHLORIDE [Concomitant]
  5. FUROSEMIDE [Concomitant]
  6. ASPIRIN [Concomitant]

REACTIONS (1)
  - HEART VALVE REPLACEMENT [None]
